FAERS Safety Report 5811569-4 (Version None)
Quarter: 2008Q3

REPORT INFORMATION
  Report Type: 
  Country: None (occurrence: None)
  Receive Date: 20080716
  Receipt Date: 20080711
  Transmission Date: 20090109
  Serious: Yes (Other)
  Sender: FDA-Public Use
  Company Number: SE-ASTRAZENECA-2008SE03443

PATIENT
  Age: 998 Month
  Sex: Female

DRUGS (10)
  1. NOLVADEX [Suspect]
     Indication: BREAST CANCER FEMALE
     Route: 048
     Dates: start: 20070501
  2. FOSAMAX [Concomitant]
  3. OSTRIOL [Concomitant]
  4. BRUFEN [Concomitant]
  5. DIGOXIN [Concomitant]
  6. LASIX [Concomitant]
  7. VENTOLIN [Concomitant]
  8. BECOTIDE [Concomitant]
  9. ACETYLCYSTEINE [Concomitant]
  10. CALCIUM D SANDOZ [Concomitant]

REACTIONS (1)
  - HYPERACUSIS [None]
